FAERS Safety Report 11390045 (Version 1)
Quarter: 2015Q3

REPORT INFORMATION
  Report Type: Spontaneous
  Country: FR (occurrence: FR)
  Receive Date: 20150818
  Receipt Date: 20150818
  Transmission Date: 20151125
  Serious: Yes (Life-Threatening, Hospitalization)
  Sender: FDA-Public Use
  Company Number: FR-HOSPIRA-2972087

PATIENT
  Age: 55 Year
  Sex: Female

DRUGS (8)
  1. INEXIUM                            /01479302/ [Concomitant]
     Active Substance: ESOMEPRAZOLE MAGNESIUM
     Indication: PRODUCT USED FOR UNKNOWN INDICATION
  2. CARBOPLATIN. [Suspect]
     Active Substance: CARBOPLATIN
     Indication: PANCREATIC NEOPLASM
     Route: 042
     Dates: start: 20150709, end: 20150709
  3. HUMALOG NPL [Concomitant]
     Indication: TYPE 2 DIABETES MELLITUS
     Dosage: 100 IU/ML
  4. CREON [Concomitant]
     Active Substance: PANCRELIPASE AMYLASE\PANCRELIPASE LIPASE\PANCRELIPASE PROTEASE
     Indication: PRODUCT USED FOR UNKNOWN INDICATION
     Dosage: 25000 U
  5. LYRICA [Concomitant]
     Active Substance: PREGABALIN
     Indication: PRODUCT USED FOR UNKNOWN INDICATION
  6. ETOPOSIDE. [Suspect]
     Active Substance: ETOPOSIDE
     Indication: PANCREATIC NEOPLASM
     Dosage: 3 CYCLES
     Route: 042
     Dates: start: 20150709, end: 20150711
  7. GAVISCON                           /00237601/ [Concomitant]
     Active Substance: ALUMINUM HYDROXIDE\MAGNESIUM CARBONATE
     Indication: PRODUCT USED FOR UNKNOWN INDICATION
  8. LANTUS [Concomitant]
     Active Substance: INSULIN GLARGINE
     Indication: TYPE 2 DIABETES MELLITUS
     Dosage: 100 U/ML

REACTIONS (9)
  - Aplasia [Recovering/Resolving]
  - General physical health deterioration [Unknown]
  - Weight decreased [Unknown]
  - Abdominal pain upper [Unknown]
  - Jaundice [Unknown]
  - Purpura [Unknown]
  - Lung disorder [Unknown]
  - Pyrexia [Recovered/Resolved]
  - Pancytopenia [Unknown]

NARRATIVE: CASE EVENT DATE: 20150719
